FAERS Safety Report 8077339-4 (Version None)
Quarter: 2012Q1

REPORT INFORMATION
  Report Type: 
  Country: None (occurrence: None)
  Receive Date: 20120127
  Receipt Date: 20120123
  Transmission Date: 20120608
  Serious: No
  Sender: FDA-Public Use
  Company Number: US-PFIZER INC-2012018594

PATIENT
  Sex: Male
  Weight: 79.365 kg

DRUGS (4)
  1. LEVODOPA [Concomitant]
     Dosage: UNK, 3X/DAY
  2. LYRICA [Suspect]
     Indication: NEUROPATHY PERIPHERAL
     Dosage: 50 MG, 3X/DAY
     Route: 048
  3. ARICEPT [Suspect]
     Indication: DEMENTIA
     Dosage: UNK
  4. CARBIDOPA [Concomitant]
     Dosage: UNK, 3X/DAY

REACTIONS (1)
  - ABNORMAL DREAMS [None]
